FAERS Safety Report 4289005-1 (Version None)
Quarter: 2004Q1

REPORT INFORMATION
  Report Type: 
  Country: None (occurrence: None)
  Receive Date: 20040126
  Receipt Date: 20031017
  Transmission Date: 20041129
  Serious: No
  Sender: FDA-Public Use
  Company Number: USA021123899

PATIENT
  Age: 79 Year
  Sex: Female
  Weight: 52 kg

DRUGS (10)
  1. EVISTA [Suspect]
     Dosage: 60 MG/DAY
     Dates: start: 20021001, end: 20030428
  2. FORTEO [Suspect]
     Indication: COMPRESSION FRACTURE
     Dosage: 20 UG/DAY
     Dates: start: 20030428
  3. FORTEO [Suspect]
     Indication: OSTEOPOROSIS
     Dosage: 20 UG/DAY
     Dates: start: 20030428
  4. ASPIRIN [Concomitant]
  5. PRILOSEC [Concomitant]
  6. TOPROL-XL [Concomitant]
  7. UNIVASC [Concomitant]
  8. XALATAN [Concomitant]
  9. LESCOL [Concomitant]
  10. NEXIUM [Concomitant]

REACTIONS (19)
  - ACCIDENTAL NEEDLE STICK [None]
  - ANXIETY [None]
  - BACK PAIN [None]
  - BACTERIURIA [None]
  - DIZZINESS [None]
  - DYSPEPSIA [None]
  - DYSURIA [None]
  - INJECTION SITE ERYTHEMA [None]
  - INJECTION SITE HAEMORRHAGE [None]
  - MYALGIA [None]
  - PRESBYOPIA [None]
  - RASH [None]
  - SENSORY DISTURBANCE [None]
  - THROAT IRRITATION [None]
  - URINARY TRACT INFECTION [None]
  - VAGINAL ERYTHEMA [None]
  - VAGINAL PAIN [None]
  - VISION BLURRED [None]
  - VISUAL DISTURBANCE [None]
